FAERS Safety Report 12744785 (Version 1)
Quarter: 2016Q3

REPORT INFORMATION
  Report Type: Report from Study
  Country: ES (occurrence: ES)
  Receive Date: 20160915
  Receipt Date: 20160915
  Transmission Date: 20161109
  Serious: Yes (Other)
  Sender: FDA-Public Use
  Company Number: ES-ROCHE-1827828

PATIENT

DRUGS (1)
  1. VEMURAFENIB [Suspect]
     Active Substance: VEMURAFENIB
     Indication: METASTATIC MALIGNANT MELANOMA
     Route: 065

REACTIONS (12)
  - Palmar-plantar erythrodysaesthesia syndrome [Unknown]
  - Alopecia [Unknown]
  - Facial paralysis [Unknown]
  - Electrocardiogram QT prolonged [Unknown]
  - Basal cell carcinoma [Unknown]
  - Autoimmune thyroiditis [Unknown]
  - Asthenia [Unknown]
  - Hyperkeratosis [Unknown]
  - Dry skin [Unknown]
  - Photosensitivity reaction [Unknown]
  - Fluid retention [Unknown]
  - Arthralgia [Unknown]
